FAERS Safety Report 7586394-7 (Version None)
Quarter: 2011Q3

REPORT INFORMATION
  Report Type: 
  Country: None (occurrence: None)
  Receive Date: 20110701
  Receipt Date: 20110620
  Transmission Date: 20111222
  Serious: Yes (Other)
  Sender: FDA-Public Use
  Company Number: A0933819A

PATIENT
  Sex: Female

DRUGS (5)
  1. CHEMOTHERAPY [Suspect]
  2. VALTREX [Suspect]
     Dosage: 1G UNKNOWN
  3. ADVAIR DISKUS 100/50 [Suspect]
  4. ZOFRAN [Suspect]
     Dosage: 8MG UNKNOWN
     Route: 065
  5. VENTOLIN HFA [Suspect]

REACTIONS (5)
  - BREAST CANCER METASTATIC [None]
  - ADVERSE EVENT [None]
  - MALAISE [None]
  - METASTASES TO LIVER [None]
  - METASTASES TO BONE [None]
